FAERS Safety Report 9364685 (Version 1)
Quarter: 2013Q2

REPORT INFORMATION
  Report Type: Spontaneous
  Country: US (occurrence: US)
  Receive Date: 20130624
  Receipt Date: 20130624
  Transmission Date: 20140414
  Serious: No
  Sender: FDA-Public Use
  Company Number: US-BAYER-2013-077433

PATIENT
  Age: 78 Year
  Sex: Female
  Weight: 62.59 kg

DRUGS (4)
  1. ALEVE CAPLET [Suspect]
     Indication: BACK PAIN
     Dosage: 2 DF, PRN
     Route: 048
     Dates: start: 201304
  2. SIMVASTATIN [Concomitant]
  3. METOPROLOL [Concomitant]
  4. DIOVAN [Concomitant]

REACTIONS (1)
  - Contusion [Not Recovered/Not Resolved]
